FAERS Safety Report 13013499 (Version 2)
Quarter: 2016Q4

REPORT INFORMATION
  Report Type: Spontaneous
  Country: SE (occurrence: SE)
  Receive Date: 20161209
  Receipt Date: 20161214
  Transmission Date: 20170207
  Serious: Yes (Life-Threatening, Other)
  Sender: FDA-Public Use
  Company Number: SE-JNJFOC-20161206492

PATIENT
  Age: 48 Year
  Sex: Female

DRUGS (1)
  1. STELARA [Suspect]
     Active Substance: USTEKINUMAB
     Indication: PSORIASIS
     Dosage: START PERIOD 7 YEARS, LAST PERIOD: 274 DAYS
     Route: 058
     Dates: start: 2009, end: 2016

REACTIONS (1)
  - Biliary cancer metastatic [Not Recovered/Not Resolved]

NARRATIVE: CASE EVENT DATE: 201610
